FAERS Safety Report 15857317 (Version 1)
Quarter: 2019Q1

REPORT INFORMATION
  Report Type: Spontaneous
  Country: US (occurrence: US)
  Receive Date: 20190122
  Receipt Date: 20190122
  Transmission Date: 20190417
  Serious: Yes (Other)
  Sender: FDA-Public Use
  Company Number: None

PATIENT
  Age: 29 Year
  Sex: Female

DRUGS (1)
  1. MOXIFLOXACIN. [Suspect]
     Active Substance: MOXIFLOXACIN
     Indication: MYCOPLASMA GENITALIUM INFECTION
     Route: 048
     Dates: start: 20180827, end: 20180910

REACTIONS (4)
  - Ocular hyperaemia [None]
  - Eye irritation [None]
  - Lacrimation increased [None]
  - Visual impairment [None]

NARRATIVE: CASE EVENT DATE: 20180912
